FAERS Safety Report 17588972 (Version 2)
Quarter: 2020Q1

REPORT INFORMATION
  Report Type: Report from Study
  Country: US (occurrence: US)
  Receive Date: 20200327
  Receipt Date: 20200330
  Transmission Date: 20200409
  Serious: Yes (Other)
  Sender: FDA-Public Use
  Company Number: US-ROCHE-2570236

PATIENT
  Age: 55 Year
  Sex: Male

DRUGS (15)
  1. PROTONIX [Concomitant]
     Active Substance: PANTOPRAZOLE SODIUM
     Route: 048
  2. OCREVUS [Suspect]
     Active Substance: OCRELIZUMAB
     Indication: MULTIPLE SCLEROSIS
     Dosage: DATE OF TREATMENT: 06/JUL/2017, 16/JAN/2018, 07/AUG/2018, 21/FEB/2019,16/SEP/2019
     Route: 042
  3. LIORESAL [Concomitant]
     Active Substance: BACLOFEN
     Route: 048
  4. BRILINTA [Concomitant]
     Active Substance: TICAGRELOR
     Route: 048
  5. TOPROL XL [Concomitant]
     Active Substance: METOPROLOL SUCCINATE
     Route: 048
  6. VITAMIN D [VITAMIN D NOS] [Concomitant]
     Active Substance: VITAMIN D NOS
     Route: 048
  7. ZETIA [Concomitant]
     Active Substance: EZETIMIBE
     Route: 048
  8. MIRAPEX [Concomitant]
     Active Substance: PRAMIPEXOLE DIHYDROCHLORIDE
     Route: 048
  9. TYLENOL [Concomitant]
     Active Substance: ACETAMINOPHEN
     Route: 048
  10. ECOTRIN [Concomitant]
     Active Substance: ASPIRIN
     Route: 048
  11. GLUCOPHAGE XR [Concomitant]
     Active Substance: METFORMIN HYDROCHLORIDE
     Route: 048
  12. GLYCOLAX [Concomitant]
     Active Substance: POLYETHYLENE GLYCOL 3350
     Route: 048
  13. LIPITOR [Concomitant]
     Active Substance: ATORVASTATIN CALCIUM
     Route: 048
  14. REVATIO [Concomitant]
     Active Substance: SILDENAFIL CITRATE
     Dosage: 2-5 PILLS 1 HOUR PRIOR TO SEX
     Route: 048
  15. BRILINTA [Concomitant]
     Active Substance: TICAGRELOR
     Route: 048

REACTIONS (6)
  - JC polyomavirus test positive [Unknown]
  - Magnetic resonance imaging abnormal [Unknown]
  - Pyrexia [Unknown]
  - Acute myocardial infarction [Unknown]
  - Vertebral lesion [Unknown]
  - Sleep apnoea syndrome [Unknown]

NARRATIVE: CASE EVENT DATE: 201812
